FAERS Safety Report 15628247 (Version 1)
Quarter: 2018Q4

REPORT INFORMATION
  Report Type: Spontaneous
  Country: US (occurrence: US)
  Receive Date: 20181116
  Receipt Date: 20181116
  Transmission Date: 20190205
  Serious: Yes (Other)
  Sender: FDA-Public Use
  Company Number: PHHY2018US153205

PATIENT
  Age: 22 Year
  Sex: Female

DRUGS (4)
  1. MIDAZOLAM [Suspect]
     Active Substance: MIDAZOLAM HYDROCHLORIDE
     Indication: SEIZURE PROPHYLAXIS
     Route: 065
  2. SODIUM BICARBONATE. [Suspect]
     Active Substance: SODIUM BICARBONATE
     Indication: ELECTROCARDIOGRAM QRS COMPLEX PROLONGED
     Dosage: 100 MEQ, BID
     Route: 065
  3. LORAZEPAM. [Suspect]
     Active Substance: LORAZEPAM
     Indication: SEIZURE PROPHYLAXIS
     Route: 065
  4. DIPHENHYDRAMINE. [Suspect]
     Active Substance: DIPHENHYDRAMINE
     Indication: PRODUCT USED FOR UNKNOWN INDICATION
     Dosage: INGESTED 200 TABLETS OF 25-MILLIGRAM
     Route: 065

REACTIONS (4)
  - Maternal exposure during pregnancy [Unknown]
  - Seizure [Unknown]
  - Product use in unapproved indication [Unknown]
  - Stillbirth [Unknown]
